FAERS Safety Report 16899803 (Version 5)
Quarter: 2022Q2

REPORT INFORMATION
  Report Type: Spontaneous
  Country: BR (occurrence: BR)
  Receive Date: 20191009
  Receipt Date: 20220628
  Transmission Date: 20220720
  Serious: Yes (Other)
  Sender: FDA-Public Use
  Company Number: BR-GLAXOSMITHKLINE-BR2017GSK171768

PATIENT

DRUGS (4)
  1. BENLYSTA [Suspect]
     Active Substance: BELIMUMAB
     Indication: Systemic lupus erythematosus
     Dosage: 600 MG, UNK
     Dates: start: 20171030
  2. IMURAN [Suspect]
     Active Substance: AZATHIOPRINE
     Indication: Product used for unknown indication
     Dosage: 1 DF, QD
  3. AZATHIOPRINE [Suspect]
     Active Substance: AZATHIOPRINE
     Indication: Product used for unknown indication
     Dosage: UNK
  4. CHLOROQUINE PHOSPHATE [Concomitant]
     Active Substance: CHLOROQUINE PHOSPHATE
     Indication: Product used for unknown indication
     Dosage: UNK

REACTIONS (23)
  - Pneumonia [Recovered/Resolved]
  - COVID-19 [Recovered/Resolved]
  - Nausea [Unknown]
  - Tachycardia [Recovered/Resolved]
  - Weight increased [Unknown]
  - Fatigue [Recovered/Resolved]
  - Ear infection [Recovered/Resolved]
  - Laryngitis [Recovered/Resolved]
  - Pain in extremity [Recovered/Resolved]
  - Anxiety [Not Recovered/Not Resolved]
  - Arthralgia [Unknown]
  - Urinary tract infection [Recovered/Resolved]
  - Pain [Recovering/Resolving]
  - Weight decreased [Unknown]
  - Dizziness [Unknown]
  - Palpitations [Unknown]
  - Respiratory disorder [Recovered/Resolved]
  - Depression [Unknown]
  - Drug effective for unapproved indication [Unknown]
  - Drug ineffective [Unknown]
  - Inappropriate schedule of product administration [Recovered/Resolved]
  - Product dose omission issue [Unknown]
  - Underdose [Not Recovered/Not Resolved]

NARRATIVE: CASE EVENT DATE: 20180119
